FAERS Safety Report 19877720 (Version 1)
Quarter: 2021Q3

REPORT INFORMATION
  Report Type: Spontaneous
  Country: DE (occurrence: DE)
  Receive Date: 20210924
  Receipt Date: 20210924
  Transmission Date: 20211014
  Serious: Yes (Hospitalization)
  Sender: FDA-Public Use
  Company Number: DE-TEVA-2021-DE-1955958

PATIENT
  Age: 56 Year
  Sex: Female

DRUGS (40)
  1. CARBOPLATIN. [Suspect]
     Active Substance: CARBOPLATIN
     Indication: OVARIAN CANCER
     Dosage: 470 MG
     Route: 065
  2. CARBOPLATIN. [Suspect]
     Active Substance: CARBOPLATIN
     Dosage: 556 MG
     Route: 065
  3. CARBOPLATIN. [Suspect]
     Active Substance: CARBOPLATIN
     Dosage: 598 MG
     Route: 065
  4. BEVACIZUMAB. [Concomitant]
     Active Substance: BEVACIZUMAB
     Dosage: 1275 MG ONCE/SINGLE ADMINISTRATION
  5. PROMETHAZINE [Concomitant]
     Active Substance: PROMETHAZINE HYDROCHLORIDE
     Indication: RESTLESS LEGS SYNDROME
     Dosage: 25 MG
     Route: 048
     Dates: start: 2000
  6. DURVALUMAB. [Suspect]
     Active Substance: DURVALUMAB
     Dosage: 1120 MG
     Route: 042
  7. DURVALUMAB. [Suspect]
     Active Substance: DURVALUMAB
     Dosage: 1120 MG
     Route: 042
  8. DURVALUMAB. [Suspect]
     Active Substance: DURVALUMAB
     Dosage: 1120 MG
     Route: 042
  9. BEVACIZUMAB. [Concomitant]
     Active Substance: BEVACIZUMAB
     Dosage: 1290 MG ONCE/SINGLE ADMINISTRATION
  10. BEVACIZUMAB. [Concomitant]
     Active Substance: BEVACIZUMAB
     Dosage: 1110 MG ONCE/SINGLE ADMINISTRATION
  11. PAROXETIN [Concomitant]
     Active Substance: PAROXETINE HYDROCHLORIDE
     Indication: DEPRESSION
     Dosage: 100 MG
     Route: 048
     Dates: start: 2000
  12. EUTHYROX [Concomitant]
     Active Substance: LEVOTHYROXINE SODIUM
     Indication: HYPOTHYROIDISM
     Dosage: 150 MCG
     Route: 048
     Dates: start: 2000
  13. PACLITAXEL. [Suspect]
     Active Substance: PACLITAXEL
     Dosage: 331 MG
     Route: 065
  14. DURVALUMAB. [Suspect]
     Active Substance: DURVALUMAB
     Dosage: 1120 MG
     Route: 042
  15. BEVACIZUMAB. [Concomitant]
     Active Substance: BEVACIZUMAB
     Dosage: 1380 MG ONCE/SINGLE ADMINISTRATION
  16. CARBOPLATIN. [Suspect]
     Active Substance: CARBOPLATIN
     Dosage: 560 MG
     Route: 065
  17. CARBOPLATIN. [Suspect]
     Active Substance: CARBOPLATIN
     Dosage: 598 MG
     Route: 065
  18. PACLITAXEL. [Suspect]
     Active Substance: PACLITAXEL
     Dosage: 322 MG
     Route: 065
  19. DURVALUMAB. [Suspect]
     Active Substance: DURVALUMAB
     Dosage: 1120 MG
     Route: 042
  20. DURVALUMAB. [Suspect]
     Active Substance: DURVALUMAB
     Dosage: 1120 MG
     Route: 042
  21. BEVACIZUMAB. [Concomitant]
     Active Substance: BEVACIZUMAB
     Dosage: 1110 MG ONCE/SINGLE ADMINISTRATION
  22. BEVACIZUMAB. [Concomitant]
     Active Substance: BEVACIZUMAB
     Dosage: 1260 MG ONCE/SINGLE ADMINISTRATION
  23. BEVACIZUMAB. [Concomitant]
     Active Substance: BEVACIZUMAB
     Dosage: 1185 MG ONCE/SINGLE ADMINISTRATION
  24. NACOM [Concomitant]
     Active Substance: CARBIDOPA\LEVODOPA
     Indication: RHEUMATOID ARTHRITIS
     Dosage: 1 DOSAGE FORMS DAILY; 100/25MG DAILY DOSE
     Route: 048
     Dates: start: 2000
  25. CARBOPLATIN. [Suspect]
     Active Substance: CARBOPLATIN
     Dosage: 523 MG
     Route: 065
  26. PACLITAXEL. [Suspect]
     Active Substance: PACLITAXEL
     Dosage: 334 MG
     Route: 065
  27. DURVALUMAB. [Suspect]
     Active Substance: DURVALUMAB
     Indication: OVARIAN CANCER
     Dosage: 1120 MG
     Route: 042
  28. DURVALUMAB. [Suspect]
     Active Substance: DURVALUMAB
     Dosage: 1120 MG
     Route: 042
  29. BEVACIZUMAB. [Concomitant]
     Active Substance: BEVACIZUMAB
     Dosage: 1245 MG ONCE/SINGLE ADMINISTRATION
  30. BEVACIZUMAB. [Concomitant]
     Active Substance: BEVACIZUMAB
     Dosage: 1170 MG ONCE/SINGLE ADMINISTRATION
  31. PACLITAXEL. [Suspect]
     Active Substance: PACLITAXEL
     Indication: OVARIAN CANCER
     Dosage: 322 MG
     Route: 065
  32. BEVACIZUMAB. [Concomitant]
     Active Substance: BEVACIZUMAB
     Dosage: 110 MG ONCE/SINGLE ADMINISTRATION
  33. DURVALUMAB. [Suspect]
     Active Substance: DURVALUMAB
     Dosage: 1120 MG
     Route: 042
  34. BEVACIZUMAB. [Concomitant]
     Active Substance: BEVACIZUMAB
     Indication: OVARIAN CANCER
     Dosage: 1222 MG ONCE/SINGLE ADMINISTRATION
  35. PACLITAXEL. [Suspect]
     Active Substance: PACLITAXEL
     Dosage: 329 MG
     Route: 065
  36. PACLITAXEL. [Suspect]
     Active Substance: PACLITAXEL
     Dosage: 322 MG
     Route: 065
  37. PANTOPRAZOL [Concomitant]
     Active Substance: PANTOPRAZOLE SODIUM
     Indication: PROPHYLAXIS
     Dosage: 40 MG
     Route: 048
     Dates: start: 2000
  38. BEVACIZUMAB. [Concomitant]
     Active Substance: BEVACIZUMAB
     Dosage: 1260 MG ONCE/SINGLE ADMINISTRATION
  39. BEVACIZUMAB. [Concomitant]
     Active Substance: BEVACIZUMAB
     Dosage: 1350 MG ONCE/SINGLE ADMINISTRATION
  40. BEVACIZUMAB. [Concomitant]
     Active Substance: BEVACIZUMAB
     Dosage: 1245 MG ONCE/SINGLE ADMINISTRATION

REACTIONS (1)
  - Respiratory tract infection [Recovered/Resolved]

NARRATIVE: CASE EVENT DATE: 20191223
